FAERS Safety Report 8885895 (Version 2)
Quarter: 2012Q4

REPORT INFORMATION
  Report Type: Report from Study
  Country: IT (occurrence: IT)
  Receive Date: 20121105
  Receipt Date: 20121227
  Transmission Date: 20130627
  Serious: Yes (Hospitalization)
  Sender: FDA-Public Use
  Company Number: PHHO2011IT02846

PATIENT
  Sex: Male
  Weight: 65 kg

DRUGS (8)
  1. ALISKIREN [Suspect]
     Indication: CARDIAC FAILURE ACUTE
     Route: 048
     Dates: start: 20100607, end: 20100621
  2. ALISKIREN [Suspect]
     Route: 048
     Dates: start: 20100621, end: 20110203
  3. ALISKIREN [Suspect]
     Route: 048
     Dates: start: 20110209
  4. TRIATEC [Concomitant]
     Indication: CARDIAC FAILURE
     Dosage: UNK
     Dates: start: 20100526, end: 20110203
  5. LASIX [Concomitant]
     Indication: CARDIAC FAILURE
     Dosage: UNK
     Dates: start: 20100713, end: 20110203
  6. ALDACTONE [Concomitant]
     Indication: CARDIAC FAILURE
     Dosage: UNK
     Dates: start: 20100707, end: 20110203
  7. ASPIRIN [Concomitant]
  8. ACE INHIBITORS [Concomitant]

REACTIONS (3)
  - Renal failure [Recovered/Resolved]
  - Diarrhoea [Recovered/Resolved]
  - Vomiting [Recovered/Resolved]
